FAERS Safety Report 6030781-5 (Version None)
Quarter: 2009Q1

REPORT INFORMATION
  Report Type: 
  Country: None (occurrence: None)
  Receive Date: 20090107
  Receipt Date: 20081229
  Transmission Date: 20090719
  Serious: Yes (Hospitalization, Other)
  Sender: FDA-Public Use
  Company Number: PHHY2008BR33528

PATIENT
  Sex: Male

DRUGS (1)
  1. LEPONEX [Suspect]
     Indication: SCHIZOPHRENIA
     Dosage: UNK

REACTIONS (7)
  - ATROPHY [None]
  - BLOOD DISORDER [None]
  - BONE MARROW DISORDER [None]
  - DEHYDRATION [None]
  - GAIT DISTURBANCE [None]
  - PLATELET COUNT ABNORMAL [None]
  - WHITE BLOOD CELL COUNT DECREASED [None]
